FAERS Safety Report 6206941-7 (Version None)
Quarter: 2009Q2

REPORT INFORMATION
  Report Type: 
  Country: None (occurrence: None)
  Receive Date: 20090528
  Receipt Date: 20090525
  Transmission Date: 20091009
  Serious: Yes (Other)
  Sender: FDA-Public Use
  Company Number: B0550340A

PATIENT
  Sex: Male

DRUGS (3)
  1. KIVEXA [Suspect]
     Indication: HIV INFECTION
     Route: 048
     Dates: start: 20070215, end: 20071009
  2. INVIRASE [Suspect]
     Indication: HIV INFECTION
     Dosage: 500MG UNKNOWN
     Route: 048
     Dates: start: 20070215
  3. NORVIR [Suspect]
     Indication: HIV INFECTION
     Dosage: 100MG UNKNOWN
     Route: 048
     Dates: start: 20070215

REACTIONS (2)
  - DRUG INTOLERANCE [None]
  - MYOCARDIAL INFARCTION [None]
